FAERS Safety Report 6672644-8 (Version None)
Quarter: 2010Q2

REPORT INFORMATION
  Report Type: 
  Country: None (occurrence: None)
  Receive Date: 20100408
  Receipt Date: 20100406
  Transmission Date: 20101027
  Serious: Yes (Other)
  Sender: FDA-Public Use
  Company Number: IL-ROXANE LABORATORIES, INC.-2010-RO-00380RO

PATIENT
  Age: 55 Year
  Sex: Female

DRUGS (3)
  1. FLUTICASONE PROPIONATE [Suspect]
     Indication: ASTHMA
     Route: 055
  2. LAMIVUDINE + ZIDOVUDINE [Suspect]
     Indication: HIV INFECTION
  3. RITONAVIR BOOSTED LOPINAVIR [Suspect]
     Indication: HIV INFECTION

REACTIONS (2)
  - ADRENAL INSUFFICIENCY [None]
  - CUSHING'S SYNDROME [None]
